FAERS Safety Report 13094815 (Version 4)
Quarter: 2018Q1

REPORT INFORMATION
  Report Type: Report from Study
  Country: DE (occurrence: DE)
  Receive Date: 20170106
  Receipt Date: 20180221
  Transmission Date: 20180508
  Serious: Yes (Hospitalization, Other)
  Sender: FDA-Public Use
  Company Number: DE-GILEAD-2016-0251467

PATIENT
  Age: 55 Year
  Sex: Male
  Weight: 89 kg

DRUGS (77)
  1. EMTRIVA [Concomitant]
     Active Substance: EMTRICITABINE
     Dosage: 200 MG, QD
  2. RAMIPRIL. [Concomitant]
     Active Substance: RAMIPRIL
     Dosage: 2.5 MG, UNK
  3. PHENPROCOUMON [Concomitant]
     Active Substance: PHENPROCOUMON
     Dosage: 3 MG, UNK
  4. PHENPROCOUMON [Concomitant]
     Active Substance: PHENPROCOUMON
     Dosage: 3 MG, UNK
  5. FERRLECIT                          /00023541/ [Concomitant]
     Dosage: 62.5 MG, UNK
  6. NITROLINGUAL [Concomitant]
     Active Substance: NITROGLYCERIN
     Dosage: UNK
  7. VENLAFAXINE [Concomitant]
     Active Substance: VENLAFAXINE HYDROCHLORIDE
     Dosage: 225 MG, UNK
  8. FERRLECIT                          /00023541/ [Concomitant]
     Dosage: 62.5 MG, UNK
  9. ATORVASTATIN [Concomitant]
     Active Substance: ATORVASTATIN
     Dosage: 10 MG, UNK
  10. RALTEGRAVIR. [Concomitant]
     Active Substance: RALTEGRAVIR
     Dosage: 400 MG, BID
  11. RALTEGRAVIR. [Concomitant]
     Active Substance: RALTEGRAVIR
     Dosage: 400 MG, BID
  12. EMTRIVA [Concomitant]
     Active Substance: EMTRICITABINE
     Dosage: 200 MG, QD
  13. EMTRIVA [Concomitant]
     Active Substance: EMTRICITABINE
     Dosage: 200 MG, QD
  14. RAMIPRIL. [Concomitant]
     Active Substance: RAMIPRIL
     Dosage: 2.5 MG, UNK
     Dates: start: 2014
  15. ASPIRIN. [Concomitant]
     Active Substance: ASPIRIN
     Dosage: 100 MG, UNK
  16. VENLAFAXINE [Concomitant]
     Active Substance: VENLAFAXINE HYDROCHLORIDE
     Dosage: 225 MG, UNK
  17. VENLAFAXINE [Concomitant]
     Active Substance: VENLAFAXINE HYDROCHLORIDE
     Dosage: 225 MG, UNK
  18. FERRLECIT                          /00023541/ [Concomitant]
     Dosage: 62.5 MG, UNK
  19. CEFUROXIM                          /00454601/ [Concomitant]
     Dosage: 500 MG, UNK
     Dates: start: 20160315, end: 20160320
  20. FLUCONAZOL [Concomitant]
     Active Substance: FLUCONAZOLE
     Dosage: 50 MG, UNK
     Dates: start: 20160315, end: 20160324
  21. ATORVASTATIN [Concomitant]
     Active Substance: ATORVASTATIN
     Dosage: 10 MG, UNK
  22. ATORVASTATIN [Concomitant]
     Active Substance: ATORVASTATIN
     Dosage: 10 MG, UNK
  23. TENOFOVIR [Concomitant]
     Active Substance: TENOFOVIR
     Dosage: 245 MG, QD
  24. TENOFOVIR [Concomitant]
     Active Substance: TENOFOVIR
     Dosage: 245 MG, QD
  25. RALTEGRAVIR. [Concomitant]
     Active Substance: RALTEGRAVIR
     Dosage: 400 MG, BID
  26. LEDIPASVIR/SOFOSBUVIR [Suspect]
     Active Substance: LEDIPASVIR\SOFOSBUVIR
     Indication: CHRONIC HEPATITIS C
     Dosage: 90 MG, QD
     Route: 048
     Dates: start: 20150618, end: 20150909
  27. EMTRIVA [Concomitant]
     Active Substance: EMTRICITABINE
     Dosage: 200 MG, QD
  28. RAMIPRIL. [Concomitant]
     Active Substance: RAMIPRIL
     Dosage: 2.5 MG, UNK
  29. RAMIPRIL. [Concomitant]
     Active Substance: RAMIPRIL
     Dosage: 2.5 MG, UNK
  30. VENLAFAXINE [Concomitant]
     Active Substance: VENLAFAXINE HYDROCHLORIDE
     Dosage: 225 MG, UNK
  31. PHENPROCOUMON [Concomitant]
     Active Substance: PHENPROCOUMON
     Dosage: 3 MG, UNK
  32. FERRLECIT                          /00023541/ [Concomitant]
     Dosage: 62.5 MG, UNK
  33. ATORVASTATIN [Concomitant]
     Active Substance: ATORVASTATIN
     Dosage: 10 MG, UNK
  34. NITROLINGUAL [Concomitant]
     Active Substance: NITROGLYCERIN
     Dosage: UNK
  35. TENOFOVIR [Concomitant]
     Active Substance: TENOFOVIR
     Dosage: 245 MG, QD
  36. TENOFOVIR [Concomitant]
     Active Substance: TENOFOVIR
     Dosage: 245 MG, QD
  37. PHENPROCOUMON [Concomitant]
     Active Substance: PHENPROCOUMON
     Dosage: 3 MG, UNK
  38. FERROSANOL [Concomitant]
     Active Substance: FERROUS GLUCONATE
     Dosage: UNK
  39. ATORVASTATIN [Concomitant]
     Active Substance: ATORVASTATIN
     Dosage: 10 MG, UNK
  40. NITROLINGUAL [Concomitant]
     Active Substance: NITROGLYCERIN
     Dosage: UNK
  41. RALTEGRAVIR. [Concomitant]
     Active Substance: RALTEGRAVIR
     Dosage: 400 MG, BID
  42. RALTEGRAVIR. [Concomitant]
     Active Substance: RALTEGRAVIR
     Dosage: 800 MG, QD
  43. EMTRIVA [Concomitant]
     Active Substance: EMTRICITABINE
     Dosage: 200 MG, QD
  44. RAMIPRIL. [Concomitant]
     Active Substance: RAMIPRIL
     Dosage: 2.5 MG, UNK
  45. ASPIRIN. [Concomitant]
     Active Substance: ASPIRIN
     Dosage: 100 MG, UNK
     Dates: start: 2006
  46. VENLAFAXINE [Concomitant]
     Active Substance: VENLAFAXINE HYDROCHLORIDE
     Dosage: 225 MG, UNK
  47. VENLAFAXINE [Concomitant]
     Active Substance: VENLAFAXINE HYDROCHLORIDE
     Dosage: 225 MG, UNK
  48. VENLAFAXINE [Concomitant]
     Active Substance: VENLAFAXINE HYDROCHLORIDE
     Dosage: 225 MG, UNK
  49. ATORVASTATIN [Concomitant]
     Active Substance: ATORVASTATIN
     Dosage: 10 MG, UNK
  50. NITROLINGUAL [Concomitant]
     Active Substance: NITROGLYCERIN
     Dosage: UNK
  51. NITROLINGUAL [Concomitant]
     Active Substance: NITROGLYCERIN
     Dosage: UNK
  52. TENOFOVIR [Concomitant]
     Active Substance: TENOFOVIR
     Dosage: 245 MG, QD
  53. RALTEGRAVIR. [Concomitant]
     Active Substance: RALTEGRAVIR
     Dosage: 400 MG, BID
  54. EMTRIVA [Concomitant]
     Active Substance: EMTRICITABINE
     Dosage: 200 MG, QD
  55. EMTRIVA [Concomitant]
     Active Substance: EMTRICITABINE
     Dosage: 200 MG, QD
  56. PHENPROCOUMON [Concomitant]
     Active Substance: PHENPROCOUMON
     Dosage: 3 MG, UNK
     Dates: start: 20151201
  57. PHENPROCOUMON [Concomitant]
     Active Substance: PHENPROCOUMON
     Dosage: 3 MG, UNK
  58. PHENPROCOUMON [Concomitant]
     Active Substance: PHENPROCOUMON
     Dosage: 3 MG, UNK
  59. FERRLECIT                          /00023541/ [Concomitant]
     Dosage: 62.5 MG, UNK
  60. FLUCONAZOL [Concomitant]
     Active Substance: FLUCONAZOLE
     Dosage: 50 MG, UNK
     Dates: start: 20160315, end: 20160324
  61. ATORVASTATIN [Concomitant]
     Active Substance: ATORVASTATIN
     Dosage: 10 MG, UNK
  62. NITROLINGUAL [Concomitant]
     Active Substance: NITROGLYCERIN
     Dosage: UNK
  63. NITROLINGUAL [Concomitant]
     Active Substance: NITROGLYCERIN
     Dosage: UNK
  64. RALTEGRAVIR. [Concomitant]
     Active Substance: RALTEGRAVIR
     Dosage: 400 MG, BID
  65. EMTRIVA [Concomitant]
     Active Substance: EMTRICITABINE
     Dosage: 200 MG, QD
  66. RAMIPRIL. [Concomitant]
     Active Substance: RAMIPRIL
     Dosage: 2.5 MG, UNK
  67. RAMIPRIL. [Concomitant]
     Active Substance: RAMIPRIL
     Dosage: 2.5 MG, UNK
  68. RAMIPRIL. [Concomitant]
     Active Substance: RAMIPRIL
     Dosage: 2.5 MG, UNK
  69. VENLAFAXINE [Concomitant]
     Active Substance: VENLAFAXINE HYDROCHLORIDE
     Dosage: 225 MG, UNK
  70. PHENPROCOUMON [Concomitant]
     Active Substance: PHENPROCOUMON
     Dosage: 3 MG, UNK
  71. FERROSANOL [Concomitant]
     Active Substance: FERROUS GLUCONATE
     Dosage: UNK
     Dates: start: 20160202
  72. ATORVASTATIN [Concomitant]
     Active Substance: ATORVASTATIN
     Dosage: 10 MG, UNK
     Dates: start: 20161010
  73. NITROLINGUAL [Concomitant]
     Active Substance: NITROGLYCERIN
     Dosage: UNK
  74. TENOFOVIR [Concomitant]
     Active Substance: TENOFOVIR
     Dosage: 245 MG, QD
  75. TENOFOVIR [Concomitant]
     Active Substance: TENOFOVIR
     Dosage: 245 MG, QD
  76. TENOFOVIR [Concomitant]
     Active Substance: TENOFOVIR
     Dosage: 245 MG, QD
  77. RALTEGRAVIR. [Concomitant]
     Active Substance: RALTEGRAVIR
     Dosage: 400 MG, BID

REACTIONS (5)
  - Peripheral artery occlusion [Recovered/Resolved]
  - Lymphangitis [Recovered/Resolved]
  - Device related infection [Recovered/Resolved]
  - Post procedural complication [Recovering/Resolving]
  - Epistaxis [Recovered/Resolved]

NARRATIVE: CASE EVENT DATE: 20150710
